FAERS Safety Report 18890693 (Version 2)
Quarter: 2021Q1

REPORT INFORMATION
  Report Type: Spontaneous
  Country: NL (occurrence: NL)
  Receive Date: 20210215
  Receipt Date: 20210217
  Transmission Date: 20210420
  Serious: Yes (Other)
  Sender: FDA-Public Use
  Company Number: NL-JNJFOC-20210221781

PATIENT
  Sex: Female

DRUGS (1)
  1. RISPERDAL [Suspect]
     Active Substance: RISPERIDONE
     Indication: SCHIZOPHRENIA
     Route: 065
     Dates: start: 2015

REACTIONS (7)
  - Agitation [Unknown]
  - Cognitive disorder [Unknown]
  - Drug ineffective [Unknown]
  - Acromegaly [Unknown]
  - Hyperprolactinaemia [Unknown]
  - Depression [Unknown]
  - Thyroid mass [Unknown]
